FAERS Safety Report 13415809 (Version 1)
Quarter: 2017Q2

REPORT INFORMATION
  Report Type: Spontaneous
  Country: FR (occurrence: FR)
  Receive Date: 20170407
  Receipt Date: 20170407
  Transmission Date: 20170830
  Serious: Yes (Hospitalization)
  Sender: FDA-Public Use
  Company Number: FR-JNJFOC-20170334162

PATIENT
  Age: 48 Year
  Sex: Female

DRUGS (7)
  1. LOXAPAC [Concomitant]
     Active Substance: LOXAPINE SUCCINATE
     Indication: PSYCHOTIC DISORDER
     Route: 065
     Dates: start: 20170209, end: 20170228
  2. TIORFAN [Concomitant]
     Active Substance: RACECADOTRIL
     Indication: PRODUCT USED FOR UNKNOWN INDICATION
     Route: 065
     Dates: start: 20170216
  3. XEPLION [Suspect]
     Active Substance: PALIPERIDONE PALMITATE
     Indication: PSYCHOTIC DISORDER
     Route: 030
     Dates: start: 20170216
  4. XEPLION [Suspect]
     Active Substance: PALIPERIDONE PALMITATE
     Indication: PSYCHOTIC DISORDER
     Route: 030
     Dates: start: 20170223
  5. DEPAKOTE [Concomitant]
     Active Substance: DIVALPROEX SODIUM
     Indication: ABNORMAL BEHAVIOUR
     Route: 065
     Dates: start: 20170208
  6. TITANOREINE [Concomitant]
     Active Substance: CARRAGEENAN\TITANIUM\ZINC
     Indication: PRODUCT USED FOR UNKNOWN INDICATION
     Route: 065
     Dates: start: 20170216
  7. DEPAKOTE [Concomitant]
     Active Substance: DIVALPROEX SODIUM
     Indication: PSYCHOTIC DISORDER
     Route: 065
     Dates: start: 20170208

REACTIONS (4)
  - Diarrhoea [Recovering/Resolving]
  - Vomiting [Recovered/Resolved]
  - Hypokalaemia [Recovering/Resolving]
  - Dyspepsia [Recovered/Resolved]

NARRATIVE: CASE EVENT DATE: 20170223
